FAERS Safety Report 24934239 (Version 1)
Quarter: 2025Q1

REPORT INFORMATION
  Report Type: Spontaneous
  Country: US (occurrence: US)
  Receive Date: 20250206
  Receipt Date: 20250206
  Transmission Date: 20250409
  Serious: No
  Sender: ELI LILLY AND COMPANY
  Company Number: US-ELI_LILLY_AND_COMPANY-US202502002916

PATIENT
  Age: 71 Year
  Sex: Female

DRUGS (1)
  1. FORTEO [Suspect]
     Active Substance: TERIPARATIDE
     Indication: Bone loss
     Route: 058
     Dates: start: 20250116

REACTIONS (6)
  - Nightmare [Unknown]
  - Sleep terror [Unknown]
  - Feeling hot [Unknown]
  - Off label use [Unknown]
  - Headache [Unknown]
  - Injection site pain [Recovered/Resolved]
